FAERS Safety Report 5502011-1 (Version None)
Quarter: 2007Q4

REPORT INFORMATION
  Report Type: 
  Country: None (occurrence: None)
  Receive Date: 20071030
  Receipt Date: 20071023
  Transmission Date: 20080405
  Serious: Yes (Life-Threatening, Hospitalization)
  Sender: FDA-Public Use
  Company Number: B0492810A

PATIENT
  Age: 56 Year
  Sex: Female

DRUGS (1)
  1. RANITIDINE [Suspect]
     Route: 040

REACTIONS (2)
  - ANAPHYLACTIC REACTION [None]
  - CARDIO-RESPIRATORY ARREST [None]
